FAERS Safety Report 8835084 (Version 2)
Quarter: 2012Q4

REPORT INFORMATION
  Report Type: Spontaneous
  Country: AU (occurrence: None)
  Receive Date: 20121009
  Receipt Date: 20121022
  Transmission Date: 20130627
  Serious: Yes (Hospitalization, Other)
  Sender: FDA-Public Use
  Company Number: 2012RR-60804

PATIENT
  Age: 69 Year
  Sex: Female

DRUGS (4)
  1. LEVETIRACETAM [Suspect]
     Indication: TEMPORAL LOBE EPILEPSY
  2. CARBAMAZEPINE [Suspect]
     Indication: TEMPORAL LOBE EPILEPSY
  3. VALPROIC ACID [Suspect]
     Indication: TEMPORAL LOBE EPILEPSY
  4. ACICLOVIR [Suspect]
     Indication: HERPES SIMPLEX

REACTIONS (15)
  - Tubulointerstitial nephritis [None]
  - Renal impairment [None]
  - Urinary tract infection [None]
  - Lichenoid keratosis [None]
  - Delirium [None]
  - Haemodialysis [None]
  - Fluid overload [None]
  - Azotaemia [None]
  - Metabolic acidosis [None]
  - Stomatitis [None]
  - Mucosal ulceration [None]
  - Klebsiella test positive [None]
  - Kidney enlargement [None]
  - Oliguria [None]
  - Oral herpes [None]
